FAERS Safety Report 9985531 (Version 1)
Quarter: 2014Q1

REPORT INFORMATION
  Report Type: Spontaneous
  Country: US (occurrence: US)
  Receive Date: 20140307
  Receipt Date: 20140307
  Transmission Date: 20141002
  Serious: Yes (Hospitalization)
  Sender: FDA-Public Use
  Company Number: US-BAYER-2014-033302

PATIENT
  Age: 30 Year
  Sex: Female
  Weight: 78.01 kg

DRUGS (5)
  1. YASMIN [Suspect]
  2. OCELLA [Suspect]
     Indication: CONTRACEPTION
  3. NIFEDICAL XL [Concomitant]
     Dosage: 60 MG, UNK
  4. NIFEDIPINE [Concomitant]
     Dosage: 10 MG, UNK
  5. PROCARDIA [Concomitant]
     Dosage: 10 MG, UNK

REACTIONS (1)
  - Thrombophlebitis [None]
